FAERS Safety Report 18538310 (Version 1)
Quarter: 2020Q4

REPORT INFORMATION
  Report Type: Spontaneous
  Country: US (occurrence: US)
  Receive Date: 20201124
  Receipt Date: 20201124
  Transmission Date: 20210114
  Serious: No
  Sender: FDA-Public Use
  Company Number: US-LEADINGPHARMA-US-2020LEASPO00167

PATIENT
  Age: 49 Year
  Sex: Female
  Weight: 90.72 kg

DRUGS (3)
  1. LORAZEPAM TABLETS USP [Suspect]
     Active Substance: LORAZEPAM
     Indication: VERTIGO
     Dosage: HALF OF 0.5 MG,0.25 MG BY MOUTH AS NEEDED
     Route: 065
     Dates: start: 2019
  2. COMPAZINE [Concomitant]
     Active Substance: PROCHLORPERAZINE MALEATE
     Indication: NAUSEA
     Route: 065
  3. PHENERGAN [Concomitant]
     Active Substance: PROMETHAZINE HYDROCHLORIDE
     Indication: NAUSEA
     Route: 065

REACTIONS (2)
  - Therapeutic response unexpected [Unknown]
  - Off label use [Unknown]

NARRATIVE: CASE EVENT DATE: 2019
